FAERS Safety Report 5834065-7 (Version None)
Quarter: 2008Q3

REPORT INFORMATION
  Report Type: 
  Country: None (occurrence: None)
  Receive Date: 20080801
  Receipt Date: 20080801
  Transmission Date: 20090109
  Serious: No
  Sender: FDA-Public Use
  Company Number: None

PATIENT
  Age: 57 Year
  Sex: Male

DRUGS (2)
  1. TRAZODONE HCL [Suspect]
     Indication: INSOMNIA
     Dosage: 200 MG AT BEDTIME PO
     Route: 048
     Dates: start: 20020319, end: 20080709
  2. TRAZODONE HCL [Suspect]
     Indication: PAIN
     Dosage: 200 MG AT BEDTIME PO
     Route: 048
     Dates: start: 20020319, end: 20080709

REACTIONS (1)
  - MUSCLE SPASMS [None]
